FAERS Safety Report 4678274-1 (Version None)
Quarter: 2005Q2

REPORT INFORMATION
  Report Type: 
  Country: None (occurrence: None)
  Receive Date: 20050601
  Receipt Date: 20050502
  Transmission Date: 20051028
  Serious: Yes (Death, Hospitalization)
  Sender: FDA-Public Use
  Company Number: PHBS2005IT06252

PATIENT
  Age: 88 Year
  Sex: Female

DRUGS (8)
  1. THIOCOLCHICOSIDE [Suspect]
     Indication: HIP FRACTURE
     Dosage: 4 MG/DAY
     Route: 030
     Dates: start: 20050418, end: 20050422
  2. TORADOL [Suspect]
     Indication: HIP FRACTURE
     Dosage: 30 MG/DAY
     Route: 030
     Dates: start: 20050422, end: 20050428
  3. LANOXIN [Concomitant]
     Indication: CARDIAC FAILURE
     Route: 048
  4. LASIX [Concomitant]
     Indication: CARDIAC FAILURE
     Route: 048
  5. CARDIOASPIRIN [Concomitant]
     Indication: CARDIAC FAILURE
     Route: 048
  6. TRIATEC COMP [Concomitant]
     Indication: CARDIAC FAILURE
     Route: 048
  7. ALLOPURINOL [Concomitant]
     Indication: CARDIAC FAILURE
     Dosage: 150 MG/DAY
  8. VOLTAREN [Suspect]
     Indication: HIP FRACTURE
     Dosage: 75 MG/DAY
     Route: 030
     Dates: start: 20050418, end: 20050422

REACTIONS (10)
  - ANURIA [None]
  - CARDIAC FAILURE [None]
  - COMA [None]
  - DERMATITIS BULLOUS [None]
  - GENERAL PHYSICAL HEALTH DETERIORATION [None]
  - HYPOTENSION [None]
  - MULTI-ORGAN FAILURE [None]
  - PRURITUS [None]
  - RASH MORBILLIFORM [None]
  - STEVENS-JOHNSON SYNDROME [None]
